FAERS Safety Report 5298113-8 (Version None)
Quarter: 2007Q1

REPORT INFORMATION
  Report Type: 
  Country: None (occurrence: None)
  Receive Date: 20070205
  Receipt Date: 20060929
  Transmission Date: 20070707
  Serious: Yes (Life-Threatening, Hospitalization)
  Sender: FDA-Public Use
  Company Number: US200609003421

PATIENT
  Sex: Female

DRUGS (4)
  1. EVISTA [Suspect]
     Indication: OSTEOPOROSIS
     Dosage: 60 MG, TAB, ORAL
     Route: 048
     Dates: start: 20040101, end: 20060101
  2. COUMADIN [Concomitant]
  3. TUMS (CALCIUM CARBONATE) [Concomitant]
  4. ASA (ASPIRIN ACETYLSALICYLIC ACID) [Concomitant]

REACTIONS (2)
  - DYSPNOEA [None]
  - PULMONARY EMBOLISM [None]
